FAERS Safety Report 10107268 (Version 2)
Quarter: 2014Q3

REPORT INFORMATION
  Report Type: Other
  Country: US (occurrence: US)
  Receive Date: 20140424
  Receipt Date: 20140729
  Transmission Date: 20150326
  Serious: Yes (Hospitalization, Other)
  Sender: FDA-Public Use
  Company Number: US-GSKPPD-2014GSK001518

PATIENT
  Age: 53 Year
  Sex: Male
  Weight: 87.49 kg

DRUGS (6)
  1. AVANDIA [Suspect]
     Active Substance: ROSIGLITAZONE MALEATE
     Indication: DIABETES MELLITUS
     Route: 048
     Dates: start: 2004, end: 200601
  2. MAVIK [Concomitant]
     Active Substance: TRANDOLAPRIL
  3. AVANDAMET [Suspect]
     Active Substance: METFORMIN HYDROCHLORIDE\ROSIGLITAZONE MALEATE
     Indication: DIABETES MELLITUS
     Dosage: 8/1000 MG?DATE OF AVANDAMET USE COULD NOT BE CONFIRMED IN RECORDS REVIEWED.
  4. VYTORIN [Concomitant]
     Active Substance: EZETIMIBE\SIMVASTATIN
     Dosage: 10/40MG
     Route: 048
  5. ALTACE [Concomitant]
     Active Substance: RAMIPRIL
     Route: 048
  6. PLAVIX [Concomitant]
     Active Substance: CLOPIDOGREL BISULFATE
     Route: 048

REACTIONS (4)
  - Coronary artery disease [Recovered/Resolved]
  - Myocardial infarction [None]
  - Cardiac failure congestive [Recovered/Resolved]
  - Angina unstable [Recovered/Resolved]

NARRATIVE: CASE EVENT DATE: 20060111
